FAERS Safety Report 11808553 (Version 1)
Quarter: 2015Q4

REPORT INFORMATION
  Report Type: Spontaneous
  Country: CA (occurrence: CA)
  Receive Date: 20151207
  Receipt Date: 20151207
  Transmission Date: 20160305
  Serious: Yes (Hospitalization)
  Sender: FDA-Public Use
  Company Number: CA-TEVA-614143ACC

PATIENT
  Age: 69 Year
  Sex: Female
  Weight: 71.73 kg

DRUGS (1)
  1. TEVA-GALANTAMINE ER [Suspect]
     Active Substance: GALANTAMINE
     Indication: DEMENTIA
     Dosage: CAPSULE, EXTENDED RELEASE. 16 MG
     Route: 048

REACTIONS (5)
  - Agitation [Recovered/Resolved]
  - Product substitution issue [Recovered/Resolved]
  - Tremor [Recovered/Resolved]
  - Abdominal pain [Recovered/Resolved]
  - Vomiting [Recovered/Resolved]
